FAERS Safety Report 18230662 (Version 2)
Quarter: 2020Q4

REPORT INFORMATION
  Report Type: Spontaneous
  Country: GB (occurrence: GB)
  Receive Date: 20200904
  Receipt Date: 20201109
  Transmission Date: 20210113
  Serious: Yes (Other)
  Sender: FDA-Public Use
  Company Number: GB-SA-2020SA239390

PATIENT

DRUGS (4)
  1. ALPROLIX [Suspect]
     Active Substance: EFTRENONACOG ALFA
     Dosage: 5000 IU, QW
     Route: 065
  2. ALPROLIX [Suspect]
     Active Substance: EFTRENONACOG ALFA
     Dosage: DOSE AND FREQUENCY(VARIED ? INITIALLY FORTNIGHTLY THEN WEEKLY, DOSE GUIDED BY LEVELS)
     Route: 065
     Dates: start: 201710, end: 202009
  3. ALPROLIX [Suspect]
     Active Substance: EFTRENONACOG ALFA
     Dosage: 5000 IU, QW
     Route: 065
  4. ALPROLIX [Suspect]
     Active Substance: EFTRENONACOG ALFA
     Dosage: DOSE AND FREQUENCY(VARIED ? INITIALLY FORTNIGHTLY THEN WEEKLY, DOSE GUIDED BY LEVELS)
     Route: 065
     Dates: start: 201710, end: 202009

REACTIONS (2)
  - Haemorrhage [Not Recovered/Not Resolved]
  - Radiation proctitis [Unknown]
